FAERS Safety Report 9440103 (Version 2)
Quarter: 2013Q3

REPORT INFORMATION
  Report Type: Spontaneous
  Country: FR (occurrence: FR)
  Receive Date: 20130805
  Receipt Date: 20130805
  Transmission Date: 20140515
  Serious: Yes (Life-Threatening, Hospitalization)
  Sender: FDA-Public Use
  Company Number: FR-ABBOTT-13P-056-1119448-00

PATIENT
  Age: 61 Year
  Sex: Female
  Weight: 144 kg

DRUGS (2)
  1. HUMIRA [Suspect]
     Indication: PSORIASIS
     Route: 058
     Dates: start: 201304, end: 201305
  2. TRIATEC [Concomitant]
     Indication: HYPERTENSION
     Route: 048

REACTIONS (3)
  - Acute pulmonary oedema [Unknown]
  - Cardiac failure [Recovered/Resolved with Sequelae]
  - Atrial fibrillation [Recovered/Resolved with Sequelae]
